FAERS Safety Report 9308925 (Version 1)
Quarter: 2013Q2

REPORT INFORMATION
  Report Type: Spontaneous
  Country: US (occurrence: US)
  Receive Date: 20130524
  Receipt Date: 20130524
  Transmission Date: 20140414
  Serious: Yes (Other)
  Sender: FDA-Public Use
  Company Number: US-US-EMD SERONO, INC.-7101944

PATIENT
  Age: 58 Year
  Sex: Female
  Weight: 60 kg

DRUGS (7)
  1. REBIF [Suspect]
     Indication: RELAPSING-REMITTING MULTIPLE SCLEROSIS
     Route: 058
     Dates: start: 20041220
  2. SYNTHROID [Concomitant]
     Indication: HYPOTHYROIDISM
  3. TIZANIDINE [Concomitant]
     Indication: MUSCLE SPASMS
  4. EFFEXOR                            /01233801/ [Concomitant]
     Indication: PRODUCT USED FOR UNKNOWN INDICATION
     Dates: start: 200312, end: 201212
  5. GABAPENTIN [Concomitant]
     Indication: NEURALGIA
  6. IMITREX                            /01044801/ [Concomitant]
     Indication: MIGRAINE
  7. AMITRIPTYLINE [Concomitant]
     Indication: DEPRESSION

REACTIONS (2)
  - Cataract [Not Recovered/Not Resolved]
  - Abnormal dreams [Recovered/Resolved]
